FAERS Safety Report 16112083 (Version 1)
Quarter: 2019Q1

REPORT INFORMATION
  Report Type: Spontaneous
  Country: PT (occurrence: PT)
  Receive Date: 20190325
  Receipt Date: 20190325
  Transmission Date: 20190418
  Serious: Yes (Disabling, Other)
  Sender: FDA-Public Use
  Company Number: PT-009507513-1903USA007857

PATIENT
  Sex: Male

DRUGS (3)
  1. ZEPATIER [Suspect]
     Active Substance: ELBASVIR\GRAZOPREVIR
     Indication: HEPATITIS C
     Dosage: UNK
     Route: 048
     Dates: start: 20190228
  2. ASPIRIN. [Concomitant]
     Active Substance: ASPIRIN
     Dosage: 100 MILLIGRAM, QD
  3. ENALAPRIL [Concomitant]
     Active Substance: ENALAPRIL
     Dosage: UNK

REACTIONS (5)
  - Hypertensive crisis [Unknown]
  - Fatigue [Unknown]
  - Blood pressure increased [Unknown]
  - Eye haemorrhage [Unknown]
  - Headache [Unknown]

NARRATIVE: CASE EVENT DATE: 201903
